FAERS Safety Report 4615065-1 (Version None)
Quarter: 2005Q1

REPORT INFORMATION
  Report Type: 
  Country: None (occurrence: None)
  Receive Date: 20050322
  Receipt Date: 20050317
  Transmission Date: 20050727
  Serious: Yes (Other)
  Sender: FDA-Public Use
  Company Number: PHEH2005US03345

PATIENT
  Age: 57 Year
  Sex: Female

DRUGS (2)
  1. LAMISIL [Suspect]
     Indication: NAIL TINEA
     Dosage: 250 MG, QD
     Route: 048
     Dates: start: 20010101, end: 20010101
  2. LAMISIL [Suspect]
     Dosage: 250 MG, QD
     Route: 048
     Dates: start: 20020101, end: 20020101

REACTIONS (3)
  - DRUG INEFFECTIVE [None]
  - LYMPHADENECTOMY [None]
  - NON-HODGKIN'S LYMPHOMA [None]
